FAERS Safety Report 9216969 (Version 1)
Quarter: 2013Q2

REPORT INFORMATION
  Report Type: Spontaneous
  Country: US (occurrence: US)
  Receive Date: 20130408
  Receipt Date: 20130408
  Transmission Date: 20140414
  Serious: Yes (Other)
  Sender: FDA-Public Use
  Company Number: US-BAYER-2013-041350

PATIENT
  Age: 38 Year
  Sex: Female

DRUGS (1)
  1. MIRENA [Suspect]
     Indication: CONTRACEPTION
     Dosage: 20 MCG/24HR, CONT
     Route: 015
     Dates: start: 200911

REACTIONS (5)
  - Vaginal haemorrhage [Recovered/Resolved]
  - Hypomenorrhoea [Not Recovered/Not Resolved]
  - Breast tenderness [None]
  - Breast swelling [None]
  - Dysmenorrhoea [None]
